FAERS Safety Report 4424304-1 (Version None)
Quarter: 2004Q3

REPORT INFORMATION
  Report Type: 
  Country: None (occurrence: None)
  Receive Date: 20040805
  Receipt Date: 20040805
  Transmission Date: 20050211
  Serious: Yes (Other)
  Sender: FDA-Public Use
  Company Number: None

PATIENT
  Sex: Female

DRUGS (3)
  1. MEBENDAZOLE  MFR - TEVA [Suspect]
     Dosage: TABLET
     Dates: start: 20040706, end: 20040723
  2. MEBENDAZOLE  MFR - TEVA [Suspect]
     Dosage: TABLET
     Dates: start: 20040622
  3. MEBENDAZOLE  MFR - TEVA [Suspect]
     Dosage: TABLET
     Dates: start: 20040628

REACTIONS (2)
  - DRUG INEFFECTIVE [None]
  - PHARMACEUTICAL PRODUCT COMPLAINT [None]
